FAERS Safety Report 18565222 (Version 1)
Quarter: 2020Q4

REPORT INFORMATION
  Report Type: Spontaneous
  Country: BR (occurrence: BR)
  Receive Date: 20201201
  Receipt Date: 20201201
  Transmission Date: 20210114
  Serious: Yes (Other)
  Sender: FDA-Public Use
  Company Number: NVSC2020BR318479

PATIENT
  Age: 44 Year
  Sex: Female

DRUGS (3)
  1. KISQALI [Suspect]
     Active Substance: RIBOCICLIB
     Indication: BREAST CANCER METASTATIC
     Dosage: 600 MG, QD
     Route: 065
     Dates: start: 201910
  2. ZOLADEX [Suspect]
     Active Substance: GOSERELIN ACETATE
     Indication: BREAST CANCER METASTATIC
     Dosage: 3.6 MG, QMO
     Route: 065
     Dates: start: 201910
  3. FASLODEX [Suspect]
     Active Substance: FULVESTRANT
     Indication: BREAST CANCER METASTATIC
     Dosage: 500 MG, QMO
     Route: 065
     Dates: start: 201910

REACTIONS (7)
  - Hot flush [Unknown]
  - Neutropenia [Unknown]
  - Fatigue [Unknown]
  - Hypermetabolism [Unknown]
  - Leukopenia [Unknown]
  - Meningioma [Unknown]
  - Loss of libido [Unknown]

NARRATIVE: CASE EVENT DATE: 202001
